FAERS Safety Report 10181356 (Version 1)
Quarter: 2014Q2

REPORT INFORMATION
  Report Type: Spontaneous
  Country: US (occurrence: US)
  Receive Date: 20140519
  Receipt Date: 20140519
  Transmission Date: 20141212
  Serious: Yes (Other)
  Sender: FDA-Public Use
  Company Number: US-AMGEN-USASP2014033723

PATIENT
  Age: 59 Year
  Sex: Female

DRUGS (1)
  1. PROLIA [Suspect]
     Indication: OSTEOPOROSIS POSTMENOPAUSAL
     Dosage: UNK
     Route: 065
     Dates: start: 20131205

REACTIONS (6)
  - Pancreatitis [Unknown]
  - Pain in jaw [Unknown]
  - Gingivitis [Unknown]
  - Back pain [Unknown]
  - Sciatica [Unknown]
  - Skin infection [Unknown]
